FAERS Safety Report 6386071-4 (Version None)
Quarter: 2009Q4

REPORT INFORMATION
  Report Type: 
  Country: None (occurrence: None)
  Receive Date: 20091002
  Receipt Date: 20081112
  Transmission Date: 20100525
  Serious: No
  Sender: FDA-Public Use
  Company Number: US-ASTRAZENECA-2008UW25323

PATIENT
  Age: 46 Year
  Sex: Female

DRUGS (8)
  1. ARIMIDEX [Suspect]
     Route: 048
     Dates: start: 20040101
  2. LEVOXYL [Concomitant]
     Route: 048
  3. TRILEPTAL [Concomitant]
     Dosage: 300MG IN THE AM AND 600MG IN THE PM
     Route: 048
  4. FLUOXETINE [Concomitant]
     Route: 048
  5. MULTI-VITAMIN [Concomitant]
     Route: 048
  6. FISH OIL SUPPLEMENT [Concomitant]
  7. CALCIUM [Concomitant]
  8. VYVANSE [Concomitant]

REACTIONS (3)
  - DRUG DOSE OMISSION [None]
  - RASH [None]
  - VAGINAL HAEMORRHAGE [None]
